FAERS Safety Report 4313274-2 (Version None)
Quarter: 2004Q1

REPORT INFORMATION
  Report Type: 
  Country: None (occurrence: None)
  Receive Date: 20040226
  Receipt Date: 20040210
  Transmission Date: 20041129
  Serious: Yes (Hospitalization)
  Sender: FDA-Public Use
  Company Number: 2004-112911-NL

PATIENT
  Age: 59 Year
  Sex: Male
  Weight: 72.7 kg

DRUGS (3)
  1. TICE BCG [Suspect]
     Indication: BLADDER CANCER
     Dosage: DF INTRAVESICAL, 2 INSTILLATIONS
     Route: 043
     Dates: start: 20010101, end: 20010101
  2. TICE BCG [Suspect]
     Indication: BLADDER CANCER
     Dosage: DF INTRAVESICAL, 1/3 VIAL FOR 3 CONSECUTIVE WEEKS EVERY 6 MONTHS
     Route: 043
     Dates: start: 20020301
  3. INTRON A [Suspect]
     Indication: BLADDER CANCER
     Dosage: 6E+07 IU INTRAVESICAL, 3 CONSECUTIVE WEEKS EVERY 6 MONTHS
     Route: 043
     Dates: start: 20020301

REACTIONS (4)
  - CHILLS [None]
  - PYREXIA [None]
  - SENSORY DISTURBANCE [None]
  - SEPSIS [None]
